FAERS Safety Report 4583402-2 (Version None)
Quarter: 2005Q1

REPORT INFORMATION
  Report Type: 
  Country: None (occurrence: None)
  Receive Date: 20050125
  Receipt Date: 20041108
  Transmission Date: 20050727
  Serious: No
  Sender: FDA-Public Use
  Company Number: USA041080314

PATIENT
  Age: 74 Year
  Sex: Male
  Weight: 73 kg

DRUGS (11)
  1. FORTEO [Suspect]
     Indication: OSTEOPOROSIS
     Dosage: 20 UG/1 DAY
     Dates: start: 20040830, end: 20040915
  2. AVANDIA [Concomitant]
  3. BUSPAR [Concomitant]
  4. ZOCOR (SIMVASTATIN RATIOPHARM) [Concomitant]
  5. UNIPHYL [Concomitant]
  6. PREDNISONE [Concomitant]
  7. CALTRATE 600 PLUS VITAMIN D [Concomitant]
  8. AMITRIPTYLINE HCL [Concomitant]
  9. DYAZIDE [Concomitant]
  10. PRINIVIL [Concomitant]
  11. SONATA [Concomitant]

REACTIONS (8)
  - DIZZINESS [None]
  - EYE PRURITUS [None]
  - EYE SWELLING [None]
  - HEADACHE [None]
  - HYPOAESTHESIA [None]
  - MASS [None]
  - OCULAR HYPERAEMIA [None]
  - SKIN DISCOLOURATION [None]
